FAERS Safety Report 20159567 (Version 7)
Quarter: 2022Q1

REPORT INFORMATION
  Report Type: Spontaneous
  Country: US (occurrence: US)
  Receive Date: 20211208
  Receipt Date: 20220214
  Transmission Date: 20220423
  Serious: No
  Sender: FDA-Public Use
  Company Number: US-GLAXOSMITHKLINE-US2021AMR246901

PATIENT
  Age: 60 Year
  Sex: Female

DRUGS (6)
  1. ADVAIR DISKUS [Suspect]
     Active Substance: FLUTICASONE PROPIONATE\SALMETEROL XINAFOATE
     Indication: Product used for unknown indication
     Dosage: UNK,100/50MCG
     Route: 055
     Dates: end: 20211208
  2. ADVAIR DISKUS [Suspect]
     Active Substance: FLUTICASONE PROPIONATE\SALMETEROL XINAFOATE
     Indication: Product used for unknown indication
     Dosage: UNK,100/50MCG 1X60D
     Route: 055
  3. ADVAIR DISKUS [Suspect]
     Active Substance: FLUTICASONE PROPIONATE\SALMETEROL XINAFOATE
  4. ADVAIR DISKUS [Suspect]
     Active Substance: FLUTICASONE PROPIONATE\SALMETEROL XINAFOATE
     Indication: Product used for unknown indication
     Dosage: UNK, 100/50MCG 1X60D
     Route: 055
  5. ADVAIR DISKUS [Suspect]
     Active Substance: FLUTICASONE PROPIONATE\SALMETEROL XINAFOATE
  6. ADVAIR DISKUS [Suspect]
     Active Substance: FLUTICASONE PROPIONATE\SALMETEROL XINAFOATE

REACTIONS (37)
  - Arthralgia [Recovered/Resolved]
  - Asthenopia [Unknown]
  - Oropharyngeal discomfort [Unknown]
  - Cough [Unknown]
  - Agitation [Unknown]
  - Headache [Not Recovered/Not Resolved]
  - Oral discomfort [Recovered/Resolved]
  - Pain [Recovered/Resolved]
  - Abdominal discomfort [Not Recovered/Not Resolved]
  - Toothache [Not Recovered/Not Resolved]
  - Oral mucosal blistering [Not Recovered/Not Resolved]
  - Ear discomfort [Not Recovered/Not Resolved]
  - Oesophageal pain [Not Recovered/Not Resolved]
  - Nasal discomfort [Recovered/Resolved]
  - Eye irritation [Recovered/Resolved]
  - Insomnia [Unknown]
  - Fatigue [Unknown]
  - Sleep disorder [Unknown]
  - Hyperhidrosis [Unknown]
  - Ear pain [Unknown]
  - Eye pain [Unknown]
  - Feeling cold [Unknown]
  - Feeling abnormal [Unknown]
  - Dyspepsia [Unknown]
  - Hypoaesthesia [Unknown]
  - Dry mouth [Unknown]
  - Taste disorder [Unknown]
  - Dizziness [Unknown]
  - Nervous system disorder [Unknown]
  - Back pain [Unknown]
  - Neck pain [Unknown]
  - Chest pain [Unknown]
  - Muscle tightness [Not Recovered/Not Resolved]
  - Wrong technique in device usage process [Unknown]
  - Product storage error [Unknown]
  - Product taste abnormal [Unknown]
  - Product complaint [Unknown]

NARRATIVE: CASE EVENT DATE: 20211130
